FAERS Safety Report 6892772-1 (Version None)
Quarter: 2010Q3

REPORT INFORMATION
  Report Type: 
  Country: None (occurrence: None)
  Receive Date: 20100731
  Receipt Date: 20080910
  Transmission Date: 20110219
  Serious: No
  Sender: FDA-Public Use
  Company Number: US-PFIZER INC-2008063044

PATIENT
  Age: 61 Year
  Sex: Female
  Weight: 50 kg

DRUGS (2)
  1. DEPO-MEDROL [Suspect]
     Indication: PHARYNGITIS
     Route: 042
     Dates: start: 20080728
  2. ROCEPHIN [Concomitant]
     Route: 042
     Dates: start: 20080728

REACTIONS (2)
  - ECCHYMOSIS [None]
  - INCORRECT ROUTE OF DRUG ADMINISTRATION [None]
